FAERS Safety Report 4455932-5 (Version None)
Quarter: 2004Q3

REPORT INFORMATION
  Report Type: 
  Country: None (occurrence: None)
  Receive Date: 20040920
  Receipt Date: 20040913
  Transmission Date: 20050211
  Serious: Yes (Other)
  Sender: FDA-Public Use
  Company Number: ENT-2004-0172

PATIENT
  Age: 82 Year
  Sex: Male

DRUGS (1)
  1. COMTAN [Suspect]
     Dosage: 200 MG
     Route: 048

REACTIONS (1)
  - HALLUCINATION [None]
